FAERS Safety Report 25240869 (Version 3)
Quarter: 2025Q2

REPORT INFORMATION
  Report Type: Spontaneous
  Country: CZ (occurrence: CZ)
  Receive Date: 20250425
  Receipt Date: 20250603
  Transmission Date: 20250716
  Serious: Yes (Hospitalization, Other)
  Sender: BAUSCH AND LOMB
  Company Number: CZ-MLMSERVICE-20250418-PI479951-00271-3

PATIENT
  Age: 35 Year
  Sex: Male

DRUGS (2)
  1. AZATHIOPRINE [Suspect]
     Active Substance: AZATHIOPRINE
     Indication: Crohn^s disease
     Route: 065
     Dates: end: 202212
  2. PREDNISOLONE [Suspect]
     Active Substance: PREDNISOLONE
     Indication: Crohn^s disease
     Route: 065

REACTIONS (5)
  - Hepatorenal syndrome [Recovered/Resolved]
  - Disseminated intravascular coagulation [Recovered/Resolved]
  - Liver disorder [Recovered/Resolved]
  - Osteochondrosis [Recovered/Resolved]
  - Varicella zoster viraemia [Recovered/Resolved]

NARRATIVE: CASE EVENT DATE: 20221201
